FAERS Safety Report 21964291 (Version 1)
Quarter: 2023Q1

REPORT INFORMATION
  Report Type: Spontaneous
  Country: US (occurrence: None)
  Receive Date: 20230206
  Receipt Date: 20230206
  Transmission Date: 20230418
  Serious: Yes (Hospitalization)
  Sender: FDA-Public Use
  Company Number: None

PATIENT
  Age: 60 Year
  Sex: Male
  Weight: 96.4 kg

DRUGS (1)
  1. IDECABTAGENE VICLEUCEL [Suspect]
     Active Substance: IDECABTAGENE VICLEUCEL
     Indication: Plasma cell myeloma
     Dosage: OTHER FREQUENCY : ONCE;?
     Route: 042
     Dates: start: 20221221, end: 20221221

REACTIONS (11)
  - Cytokine release syndrome [None]
  - Hypoxia [None]
  - Hypervolaemia [None]
  - Oedema peripheral [None]
  - Tachycardia [None]
  - Feeling abnormal [None]
  - Aphasia [None]
  - Limb discomfort [None]
  - Application site pruritus [None]
  - Application site bruise [None]
  - Neutrophil count abnormal [None]

NARRATIVE: CASE EVENT DATE: 20221222
